FAERS Safety Report 5764512-0 (Version None)
Quarter: 2008Q2

REPORT INFORMATION
  Report Type: 
  Country: None (occurrence: None)
  Receive Date: 20080605
  Receipt Date: 20080528
  Transmission Date: 20081010
  Serious: Yes (Other)
  Sender: FDA-Public Use
  Company Number: 2008014030

PATIENT
  Sex: Male

DRUGS (1)
  1. VISINE (OXYEMTAZOLINE) [Suspect]
     Dosage: 1 FEW DROPS ONCE, OPHTHALMIC
     Route: 047
     Dates: start: 20080528, end: 20080528

REACTIONS (2)
  - EYE IRRITATION [None]
  - PHARMACEUTICAL PRODUCT COMPLAINT [None]
